FAERS Safety Report 7669545-5 (Version None)
Quarter: 2011Q3

REPORT INFORMATION
  Report Type: 
  Country: None (occurrence: None)
  Receive Date: 20110808
  Receipt Date: 20110804
  Transmission Date: 20111222
  Serious: Yes (Death, Other)
  Sender: FDA-Public Use
  Company Number: US-BRISTOL-MYERS SQUIBB COMPANY-15871213

PATIENT
  Age: 71 Year
  Sex: Male

DRUGS (2)
  1. IRINOTECAN HCL [Suspect]
     Indication: COLON CANCER METASTATIC
     Route: 042
  2. ERBITUX [Suspect]
     Indication: COLON CANCER METASTATIC
     Dosage: INITIAL DOSE 250MG/M2 REDUCED TO 200MG/M2.
     Route: 042
     Dates: start: 20110323, end: 20110511

REACTIONS (5)
  - RASH [None]
  - NEOPLASM MALIGNANT [None]
  - PNEUMONIA ASPIRATION [None]
  - SEPSIS [None]
  - PERITONITIS BACTERIAL [None]
